FAERS Safety Report 9443446 (Version 1)
Quarter: 2013Q3

REPORT INFORMATION
  Report Type: Spontaneous
  Country: IT (occurrence: IT)
  Receive Date: 20130806
  Receipt Date: 20130806
  Transmission Date: 20140515
  Serious: Yes (Hospitalization)
  Sender: FDA-Public Use
  Company Number: IT-GLAXOSMITHKLINE-B0913288A

PATIENT
  Age: 69 Year
  Sex: Female

DRUGS (2)
  1. ARIXTRA [Suspect]
     Indication: DEEP VEIN THROMBOSIS
     Route: 058
     Dates: start: 20130416, end: 20130507
  2. NAPROXENE [Suspect]
     Indication: MYALGIA
     Dates: start: 20130416, end: 20130507

REACTIONS (1)
  - Anaemia [Unknown]
